FAERS Safety Report 20043024 (Version 6)
Quarter: 2022Q1

REPORT INFORMATION
  Report Type: Spontaneous
  Country: US (occurrence: US)
  Receive Date: 20211108
  Receipt Date: 20220217
  Transmission Date: 20220423
  Serious: Yes (Hospitalization, Other)
  Sender: FDA-Public Use
  Company Number: US-Global Blood Therapeutics Inc-US-GBT-21-03896

PATIENT
  Sex: Male

DRUGS (5)
  1. OXBRYTA [Suspect]
     Active Substance: VOXELOTOR
     Indication: Sickle cell disease
     Route: 048
     Dates: start: 20210923, end: 20211231
  2. OXBRYTA [Suspect]
     Active Substance: VOXELOTOR
     Route: 048
     Dates: start: 202201, end: 20220110
  3. OXBRYTA [Suspect]
     Active Substance: VOXELOTOR
     Route: 048
  4. HUMAN RED BLOOD CELL [Concomitant]
     Active Substance: HUMAN RED BLOOD CELL
     Indication: Sickle cell disease
     Dosage: ONE UNIT
     Dates: start: 2021, end: 2021
  5. HUMAN RED BLOOD CELL [Concomitant]
     Active Substance: HUMAN RED BLOOD CELL
     Dosage: ONE TRANSFUSION
     Dates: start: 2021, end: 2021

REACTIONS (18)
  - Disorientation [Unknown]
  - Mental status changes [Unknown]
  - Sickle cell anaemia with crisis [Unknown]
  - Sickle cell anaemia with crisis [Unknown]
  - Renal impairment [Recovering/Resolving]
  - Sickle cell anaemia with crisis [Unknown]
  - Rash [Unknown]
  - Vomiting [Unknown]
  - Muscle spasms [Unknown]
  - Haemoglobin decreased [Unknown]
  - Blood iron decreased [Unknown]
  - Confusional state [Unknown]
  - Mental impairment [Unknown]
  - Sickle cell anaemia with crisis [Not Recovered/Not Resolved]
  - Skin ulcer [Recovering/Resolving]
  - Headache [Unknown]
  - Product dose omission issue [Unknown]
  - Therapy cessation [Unknown]

NARRATIVE: CASE EVENT DATE: 20210101
